FAERS Safety Report 9229790 (Version 3)
Quarter: 2013Q2

REPORT INFORMATION
  Report Type: Spontaneous
  Country: BR (occurrence: BR)
  Receive Date: 20130415
  Receipt Date: 20130520
  Transmission Date: 20140414
  Serious: Yes (Hospitalization, Other)
  Sender: FDA-Public Use
  Company Number: BR-BIOGENIDEC-2013BI031914

PATIENT
  Age: 52 Year
  Sex: Female

DRUGS (5)
  1. TYSABRI [Suspect]
     Indication: MULTIPLE SCLEROSIS
     Route: 042
     Dates: start: 20110916
  2. TRAMADOL HYDROCHLORIDE [Concomitant]
     Indication: HEADACHE
  3. LISADOR [Concomitant]
     Indication: HEADACHE
  4. MANTIDAN [Concomitant]
     Indication: TREMOR
  5. LYRICA [Concomitant]
     Indication: FIBROMYALGIA

REACTIONS (3)
  - Cholelithiasis [Recovered/Resolved]
  - Drug-induced liver injury [Recovered/Resolved]
  - Cervicogenic headache [Not Recovered/Not Resolved]
